FAERS Safety Report 4802311-4 (Version None)
Quarter: 2005Q4

REPORT INFORMATION
  Report Type: 
  Country: None (occurrence: None)
  Receive Date: 20051012
  Receipt Date: 20051005
  Transmission Date: 20060501
  Serious: Yes (Other)
  Sender: FDA-Public Use
  Company Number: HQWYE838905OCT05

PATIENT

DRUGS (2)
  1. CORDARONE [Suspect]
     Dosage: SEE IMAGE
     Route: 042
  2. . [Concomitant]

REACTIONS (4)
  - AURA [None]
  - CEREBROVASCULAR ACCIDENT [None]
  - CORONARY ARTERY SURGERY [None]
  - VISUAL DISTURBANCE [None]
